FAERS Safety Report 17141835 (Version 2)
Quarter: 2019Q4

REPORT INFORMATION
  Report Type: Spontaneous
  Country: DE (occurrence: DE)
  Receive Date: 20191211
  Receipt Date: 20191216
  Transmission Date: 20200122
  Serious: Yes (Hospitalization)
  Sender: FDA-Public Use
  Company Number: DE-MYLANLABS-2019M1122119

PATIENT
  Age: 81 Year
  Sex: Female

DRUGS (14)
  1. ADALIMUMAB [Suspect]
     Active Substance: ADALIMUMAB
     Indication: PRODUCT USED FOR UNKNOWN INDICATION
     Dosage: 40 MG, 1-0-0-0, ALLE 14 D
     Route: 058
  2. METHOTREXATE. [Suspect]
     Active Substance: METHOTREXATE
     Indication: PRODUCT USED FOR UNKNOWN INDICATION
     Dosage: 10 MG, 1-0-0-0
  3. COLECALCIFEROL [Concomitant]
     Active Substance: CHOLECALCIFEROL
     Dosage: 20000 IE, 1-0-0-0
  4. LEVOTHYROXINUM NATRICUM [Concomitant]
     Dosage: 125 MG, 1-0-0-0
  5. FOLSAEURE [Concomitant]
     Active Substance: FOLIC ACID
     Dosage: 5 MG, 1-0-0-0, 1X PRO WOCHE
  6. METFORMIN [Concomitant]
     Active Substance: METFORMIN HYDROCHLORIDE
     Dosage: 1000 MG, 1-0-1-0
  7. PREDNISOLON                        /00016201/ [Suspect]
     Active Substance: PREDNISOLONE
     Indication: PRODUCT USED FOR UNKNOWN INDICATION
     Dosage: 5 MG, 1-0-0-0
  8. ATORVASTATIN [Concomitant]
     Active Substance: ATORVASTATIN
     Dosage: 40 MG, 0-0-1-0
  9. TROSPIUM [Concomitant]
     Active Substance: TROSPIUM
     Dosage: 15 MG, 1-0-1-0
  10. PANTOPRAZOL                        /01263201/ [Concomitant]
     Active Substance: PANTOPRAZOLE
     Dosage: 40 MG, 1-0-0-0
  11. METAMIZOL                          /06276701/ [Concomitant]
     Active Substance: METAMIZOLE
     Dosage: NK MG, 4X30GTT BEI BEDARF
  12. ACETYLSALICYLIC ACID [Concomitant]
     Active Substance: ASPIRIN
     Dosage: 100 MG, 1-0-0-0
  13. METOPROLOL. [Concomitant]
     Active Substance: METOPROLOL
     Dosage: 23.75 MG, 1-0-1-0
  14. EISEN(II)-GLYCIN-SULFAT-KOMPLEX [Concomitant]
     Active Substance: FERROUS GLYCINE SULFATE
     Dosage: 50 MG, 1-0-0-0

REACTIONS (5)
  - Dehydration [Unknown]
  - General physical health deterioration [Unknown]
  - Lip swelling [Unknown]
  - Oral pain [Unknown]
  - Face oedema [Unknown]
